FAERS Safety Report 4636291-1 (Version None)
Quarter: 2005Q2

REPORT INFORMATION
  Report Type: 
  Country: None (occurrence: None)
  Receive Date: 20050415
  Receipt Date: 20040701
  Transmission Date: 20051028
  Serious: No
  Sender: FDA-Public Use
  Company Number: US-BRISTOL-MYERS SQUIBB COMPANY-12631495

PATIENT
  Age: 66 Year
  Sex: Female

DRUGS (5)
  1. PARAPLATIN [Suspect]
     Indication: OVARIAN CANCER
     Dosage: INITIAL DOSE: 01-APR-2004
     Route: 042
     Dates: start: 20040628, end: 20040628
  2. ZOFRAN [Concomitant]
     Indication: ANTIEMETIC SUPPORTIVE CARE
  3. ALOXI [Concomitant]
     Indication: ANTIEMETIC SUPPORTIVE CARE
  4. DECADRON [Concomitant]
     Indication: PREMEDICATION
  5. BENADRYL [Concomitant]
     Indication: PREMEDICATION

REACTIONS (3)
  - CHEST DISCOMFORT [None]
  - PRURITUS [None]
  - RASH GENERALISED [None]
